FAERS Safety Report 25666002 (Version 2)
Quarter: 2025Q3

REPORT INFORMATION
  Report Type: Spontaneous
  Country: JP (occurrence: JP)
  Receive Date: 20250811
  Receipt Date: 20250825
  Transmission Date: 20251020
  Serious: Yes (Death, Life-Threatening, Hospitalization)
  Sender: EISAI
  Company Number: JP-Eisai-202505814_LEN-EC_P_1

PATIENT
  Sex: Female

DRUGS (2)
  1. LENVIMA [Suspect]
     Active Substance: LENVATINIB
     Indication: Endometrial cancer recurrent
     Route: 048
     Dates: start: 2025, end: 2025
  2. KEYTRUDA [Suspect]
     Active Substance: PEMBROLIZUMAB
     Indication: Endometrial cancer recurrent
     Dosage: 3 COURSES
     Route: 041
     Dates: start: 2025, end: 2025

REACTIONS (3)
  - Malignant neoplasm progression [Fatal]
  - Electrolyte imbalance [Recovering/Resolving]
  - Cardiac arrest [Recovering/Resolving]

NARRATIVE: CASE EVENT DATE: 20250101
